FAERS Safety Report 8610400-1 (Version None)
Quarter: 2012Q3

REPORT INFORMATION
  Report Type: 
  Country: None (occurrence: None)
  Receive Date: 20120822
  Receipt Date: 20120817
  Transmission Date: 20120928
  Serious: Yes (Hospitalization)
  Sender: FDA-Public Use
  Company Number: PHHY2012NL071100

PATIENT
  Sex: Male
  Weight: 95 kg

DRUGS (4)
  1. NOVORAPID [Concomitant]
     Dosage: 100E/ML CARTRIDGE 3ML
     Dates: start: 20120807
  2. OCTREOTIDE ACETATE [Suspect]
     Indication: ILEAL FISTULA
     Dosage: 0.1 MG, TID
     Dates: start: 20120717, end: 20120810
  3. FRAXIPARIN [Concomitant]
     Dosage: 0.3 ML, QD
     Dates: start: 20120807
  4. ESOMEPRAZOLE SODIUM [Concomitant]
     Dosage: 40 MG, UNK
     Dates: start: 20120807

REACTIONS (2)
  - HYPOTENSION [None]
  - BRADYCARDIA [None]
